FAERS Safety Report 9375055 (Version 1)
Quarter: 2013Q2

REPORT INFORMATION
  Report Type: Report from Study
  Country: GB (occurrence: GB)
  Receive Date: 20130628
  Receipt Date: 20130628
  Transmission Date: 20140414
  Serious: Yes (Hospitalization)
  Sender: FDA-Public Use
  Company Number: GB-ASTRAZENECA-2013SE48031

PATIENT
  Age: 16996 Day
  Sex: Male
  Weight: 56.6 kg

DRUGS (5)
  1. ZD6474 [Suspect]
     Indication: PANCREATIC CARCINOMA
     Route: 048
     Dates: start: 20130606, end: 20130606
  2. ZD6474 [Suspect]
     Indication: PANCREATIC CARCINOMA
     Route: 048
     Dates: start: 20130607, end: 20130608
  3. GEMCITABINE [Suspect]
     Indication: PANCREATIC CARCINOMA
     Route: 042
     Dates: start: 20130606
  4. MST [Concomitant]
     Indication: PAIN
     Route: 048
     Dates: start: 20130515
  5. OROMORPH [Concomitant]
     Indication: PAIN
     Route: 048
     Dates: start: 20130505

REACTIONS (2)
  - Overdose [Recovered/Resolved]
  - Electrocardiogram QT prolonged [Recovered/Resolved]
